FAERS Safety Report 13459253 (Version 1)
Quarter: 2017Q2

REPORT INFORMATION
  Report Type: Report from Study
  Country: US (occurrence: US)
  Receive Date: 20170419
  Receipt Date: 20170419
  Transmission Date: 20170830
  Serious: Yes (Other)
  Sender: FDA-Public Use
  Company Number: US-AMGEN-USASL2017057544

PATIENT
  Age: 64 Year
  Sex: Female

DRUGS (2)
  1. HUMIRA [Suspect]
     Active Substance: ADALIMUMAB
     Indication: PRODUCT USED FOR UNKNOWN INDICATION
     Dosage: UNK
     Route: 065
  2. ENBREL [Suspect]
     Active Substance: ETANERCEPT
     Indication: PSORIATIC ARTHROPATHY
     Dosage: 50 MG, QWK
     Route: 065

REACTIONS (8)
  - Immunosuppression [Unknown]
  - Upper respiratory tract infection [Unknown]
  - Ear infection [Unknown]
  - Osteoarthritis [Not Recovered/Not Resolved]
  - Pharyngitis streptococcal [Unknown]
  - Injection site bruising [Not Recovered/Not Resolved]
  - Chest pain [Recovered/Resolved]
  - Fibromyalgia [Not Recovered/Not Resolved]
